FAERS Safety Report 10522682 (Version 1)
Quarter: 2014Q4

REPORT INFORMATION
  Report Type: Spontaneous
  Country: US (occurrence: None)
  Receive Date: 20141010
  Receipt Date: 20141010
  Transmission Date: 20150528
  Serious: Yes (Disabling)
  Sender: FDA-Public Use
  Company Number: 2014ST000121

PATIENT
  Age: 73 Year
  Sex: Male
  Weight: 65.3 kg

DRUGS (7)
  1. UCERIS [Suspect]
     Active Substance: BUDESONIDE
     Indication: COLITIS ULCERATIVE
     Dosage: QAM
     Route: 048
     Dates: start: 20140827, end: 20140903
  2. B6 (PYRIDOXINE HYDROCHLORIDE) [Concomitant]
  3. XALATAN [Concomitant]
     Active Substance: LATANOPROST
  4. NIASPAN (NICOTINIC ACID) [Concomitant]
  5. B12 (CYANOCOBALAMIN) [Concomitant]
  6. FOLIC ACID. [Concomitant]
     Active Substance: FOLIC ACID
  7. ASPIRIN (ACETYLSALICYLIC ACID) [Concomitant]
     Active Substance: ASPIRIN

REACTIONS (6)
  - Oedema peripheral [None]
  - Increased appetite [None]
  - Energy increased [None]
  - Cushingoid [None]
  - Dizziness [None]
  - Generalised oedema [None]

NARRATIVE: CASE EVENT DATE: 201408
